FAERS Safety Report 8183366-9 (Version None)
Quarter: 2012Q1

REPORT INFORMATION
  Report Type: 
  Country: None (occurrence: None)
  Receive Date: 20120305
  Receipt Date: 20120223
  Transmission Date: 20120608
  Serious: Yes (Other)
  Sender: FDA-Public Use
  Company Number: ES-SANOFI-AVENTIS-2012SA012325

PATIENT
  Age: 63 Year
  Sex: Male

DRUGS (3)
  1. VANCOMYCIN [Concomitant]
     Route: 065
     Dates: start: 20100819, end: 20100825
  2. FUROSEMIDE [Suspect]
     Route: 065
  3. LINEZOLID [Concomitant]
     Route: 065
     Dates: start: 20100825, end: 20100901

REACTIONS (1)
  - NEPHROPATHY TOXIC [None]
